FAERS Safety Report 18739940 (Version 1)
Quarter: 2021Q1

REPORT INFORMATION
  Report Type: Spontaneous
  Country: US (occurrence: US)
  Receive Date: 20210114
  Receipt Date: 20210114
  Transmission Date: 20210419
  Serious: No
  Sender: FDA-Public Use
  Company Number: US-DEXPHARM-20200397

PATIENT
  Age: 71 Year
  Sex: Female

DRUGS (1)
  1. OMEPRAZOLE DELAYED RELEASE TABLETS 20 MG [Suspect]
     Active Substance: OMEPRAZOLE
     Indication: GASTROOESOPHAGEAL REFLUX DISEASE
     Dosage: 20 MG, QD
     Route: 048
     Dates: start: 2017, end: 202005

REACTIONS (4)
  - Therapeutic product effect decreased [Unknown]
  - Abdominal pain upper [Not Recovered/Not Resolved]
  - Dyspepsia [Not Recovered/Not Resolved]
  - Vomiting [Unknown]

NARRATIVE: CASE EVENT DATE: 20200507
